FAERS Safety Report 6206484-0 (Version None)
Quarter: 2009Q2

REPORT INFORMATION
  Report Type: 
  Country: None (occurrence: None)
  Receive Date: 20090528
  Receipt Date: 20090521
  Transmission Date: 20091009
  Serious: Yes (Other)
  Sender: FDA-Public Use
  Company Number: CA-AMGEN-US347929

PATIENT
  Sex: Female

DRUGS (12)
  1. ARANESP [Suspect]
     Indication: DIALYSIS
     Route: 058
  2. CALCITRIOL [Concomitant]
  3. FOLIC ACID [Concomitant]
  4. LANSOPRAZOLE [Concomitant]
     Route: 048
  5. PHENOBARBITAL [Concomitant]
     Route: 048
  6. SEPTRA [Concomitant]
  7. SODIUM CHLORIDE [Concomitant]
     Route: 048
  8. FERROUS SULFATE TAB [Concomitant]
  9. NUTROPIN [Concomitant]
     Route: 058
  10. OXYBUTYNIN CHLORIDE [Concomitant]
  11. VITAMIN D [Concomitant]
  12. RED BLOOD CELLS [Concomitant]

REACTIONS (2)
  - APLASIA PURE RED CELL [None]
  - VARICES OESOPHAGEAL [None]
